FAERS Safety Report 18538408 (Version 2)
Quarter: 2024Q3

REPORT INFORMATION
  Report Type: Spontaneous
  Country: NL (occurrence: NL)
  Receive Date: 20201124
  Receipt Date: 20240909
  Transmission Date: 20241017
  Serious: Yes (Hospitalization, Other)
  Sender: AUROBINDO
  Company Number: NL-AUROBINDO-08-AUR-02494

PATIENT
  Age: 3 Year
  Sex: Female

DRUGS (6)
  1. ACETAMINOPHEN [Interacting]
     Active Substance: ACETAMINOPHEN
     Indication: Pyrexia
     Dosage: UNK
     Route: 065
  2. TOPIRAMATE [Interacting]
     Active Substance: TOPIRAMATE
     Indication: Severe myoclonic epilepsy of infancy
     Dosage: 8.4 MILLIGRAM/KILOGRAM, ONCE A DAY
     Route: 065
  3. TOPIRAMATE [Interacting]
     Active Substance: TOPIRAMATE
     Indication: Myoclonic epilepsy
  4. VALPROATE SODIUM [Interacting]
     Active Substance: VALPROATE SODIUM
     Indication: Severe myoclonic epilepsy of infancy
     Dosage: 27 MILLIGRAM/KILOGRAM, ONCE A DAY
     Route: 065
  5. VALPROATE SODIUM [Interacting]
     Active Substance: VALPROATE SODIUM
     Indication: Myoclonic epilepsy
  6. CLOBAZAM [Concomitant]
     Active Substance: CLOBAZAM
     Indication: Product used for unknown indication
     Dosage: 0.3 MILLIGRAM/KILOGRAM, ONCE A DAY
     Route: 065

REACTIONS (3)
  - Liver injury [Recovered/Resolved]
  - Hepatotoxicity [Recovered/Resolved]
  - Drug interaction [Recovered/Resolved]
